FAERS Safety Report 5367024-1 (Version None)
Quarter: 2007Q2

REPORT INFORMATION
  Report Type: 
  Country: None (occurrence: None)
  Receive Date: 20070619
  Receipt Date: 20070619
  Transmission Date: 20071010
  Serious: Yes (Other)
  Sender: FDA-Public Use
  Company Number: None

PATIENT
  Sex: Male
  Weight: 88.4514 kg

DRUGS (3)
  1. PROPRANOLOL [Suspect]
     Indication: ARTERIOSCLEROSIS CORONARY ARTERY
     Dosage: 1 CAPSULE 2X DAILY MOUTH
     Route: 048
     Dates: start: 20070409, end: 20070416
  2. PROPRANOLOL [Suspect]
     Indication: ATRIAL FIBRILLATION
     Dosage: 1 CAPSULE 2X DAILY MOUTH
     Route: 048
     Dates: start: 20070409, end: 20070416
  3. PROPRANOLOL [Suspect]
     Indication: HYPERTENSION
     Dosage: 1 CAPSULE 2X DAILY MOUTH
     Route: 048
     Dates: start: 20070409, end: 20070416

REACTIONS (2)
  - HYPERSENSITIVITY [None]
  - RASH GENERALISED [None]
